FAERS Safety Report 8919104 (Version 1)
Quarter: 2012Q4

REPORT INFORMATION
  Report Type: Report from Study
  Country: GB (occurrence: GB)
  Receive Date: 20121121
  Receipt Date: 20121121
  Transmission Date: 20130627
  Serious: Yes (Death, Hospitalization)
  Sender: FDA-Public Use
  Company Number: GB-ACTELION-A-CH2005-10541

PATIENT
  Age: 15 Year
  Sex: Male
  Weight: 32 kg

DRUGS (3)
  1. ZAVESCA [Suspect]
     Indication: NIEMANN-PICK DISEASE
     Dosage: 300 mg, od
     Route: 048
     Dates: start: 20030618, end: 20071130
  2. DOMPERIDONE [Concomitant]
  3. OMEPRAZOLE [Concomitant]

REACTIONS (11)
  - Pneumonia aspiration [Fatal]
  - Aspiration [Fatal]
  - Dyspnoea [Fatal]
  - Pleural effusion [Fatal]
  - Niemann-Pick disease [Not Recovered/Not Resolved]
  - Neurological decompensation [Not Recovered/Not Resolved]
  - Dyskinesia [Not Recovered/Not Resolved]
  - Tongue paralysis [Not Recovered/Not Resolved]
  - Cough [Not Recovered/Not Resolved]
  - Condition aggravated [Not Recovered/Not Resolved]
  - Kyphoscoliosis [Unknown]
